FAERS Safety Report 4569403-9 (Version None)
Quarter: 2005Q1

REPORT INFORMATION
  Report Type: 
  Country: None (occurrence: None)
  Receive Date: 20050203
  Receipt Date: 20050126
  Transmission Date: 20050727
  Serious: Yes (Hospitalization)
  Sender: FDA-Public Use
  Company Number: JP-ROCHE-393957

PATIENT
  Age: 43 Year
  Sex: Female

DRUGS (3)
  1. CELLCEPT [Suspect]
     Route: 048
     Dates: end: 20030715
  2. PROGRAF [Suspect]
     Route: 065
     Dates: end: 20040415
  3. METHYLPREDNISOLONE [Suspect]
     Route: 048

REACTIONS (4)
  - ANAEMIA [None]
  - APLASIA PURE RED CELL [None]
  - ERYTHEMA INFECTIOSUM [None]
  - KIDNEY TRANSPLANT REJECTION [None]
